FAERS Safety Report 6193976-6 (Version None)
Quarter: 2009Q2

REPORT INFORMATION
  Report Type: 
  Country: None (occurrence: None)
  Receive Date: 20090518
  Receipt Date: 20090511
  Transmission Date: 20091009
  Serious: Yes (Other)
  Sender: FDA-Public Use
  Company Number: PHHY2008CA32588

PATIENT
  Sex: Male

DRUGS (4)
  1. SANDOSTATIN LAR [Suspect]
     Indication: CARCINOID TUMOUR
     Dosage: 30 MG, QMO
     Route: 030
     Dates: start: 20050831
  2. SANDOSTATIN LAR [Suspect]
     Dosage: 40 MG Q4 WEEKS
  3. SANDOSTATIN LAR [Suspect]
     Dosage: 40 MG Q4 WEEKS
     Dates: start: 20090211
  4. SANDOSTATIN LAR [Suspect]
     Dosage: 30 MG Q4 WEEKS
     Dates: start: 20090311

REACTIONS (3)
  - DIARRHOEA [None]
  - THYROID NEOPLASM [None]
  - THYROIDECTOMY [None]
